FAERS Safety Report 10128470 (Version 3)
Quarter: 2014Q2

REPORT INFORMATION
  Report Type: Spontaneous
  Country: CA (occurrence: CA)
  Receive Date: 20140428
  Receipt Date: 20140509
  Transmission Date: 20141212
  Serious: Yes (Life-Threatening, Other)
  Sender: FDA-Public Use
  Company Number: CA-ROCHE-1385449

PATIENT
  Age: 67 Year
  Sex: Female

DRUGS (16)
  1. HERCEPTIN [Suspect]
     Indication: BREAST CANCER METASTATIC
     Route: 042
     Dates: start: 201211, end: 2014
  2. XELODA [Suspect]
     Indication: BREAST CANCER METASTATIC
     Route: 048
     Dates: start: 2012, end: 20131204
  3. XELODA [Suspect]
     Route: 048
     Dates: end: 20131228
  4. TAXOL [Suspect]
     Indication: BREAST CANCER METASTATIC
     Route: 065
     Dates: start: 20130830, end: 2013
  5. CARBOPLATIN [Suspect]
     Indication: BREAST CANCER METASTATIC
     Route: 065
     Dates: start: 20130830, end: 2013
  6. VINORELBINE TARTRATE [Suspect]
     Indication: BREAST CANCER METASTATIC
     Route: 065
     Dates: start: 20131220, end: 20131228
  7. TYKERB [Suspect]
     Indication: BREAST CANCER METASTATIC
     Route: 065
     Dates: start: 20131220, end: 20131228
  8. SINGULAIR [Concomitant]
  9. SYNTHROID [Concomitant]
  10. RABEPRAZOLE [Concomitant]
  11. METFORMIN [Concomitant]
  12. GLUCOBAY [Concomitant]
  13. HUMULIN N [Concomitant]
  14. COVERSYL [Concomitant]
  15. BISOPROLOL [Concomitant]
  16. ASPIRIN [Concomitant]

REACTIONS (5)
  - Rash [Unknown]
  - Ascites [Not Recovered/Not Resolved]
  - Neoplasm [Not Recovered/Not Resolved]
  - Skin exfoliation [Unknown]
  - Disease progression [Not Recovered/Not Resolved]
